FAERS Safety Report 12331856 (Version 1)
Quarter: 2016Q2

REPORT INFORMATION
  Report Type: Report from Study
  Country: CA (occurrence: CA)
  Receive Date: 20160504
  Receipt Date: 20160504
  Transmission Date: 20160815
  Serious: Yes (Other)
  Sender: FDA-Public Use
  Company Number: CA-JNJFOC-20160427599

PATIENT
  Age: 8 Month

DRUGS (1)
  1. REMICADE [Suspect]
     Active Substance: INFLIXIMAB
     Indication: CROHN^S DISEASE
     Dosage: MOTHER^S DOSING
     Route: 064
     Dates: start: 20140113

REACTIONS (3)
  - Leukaemia [Recovering/Resolving]
  - Foetal exposure during pregnancy [Recovered/Resolved]
  - Malaise [Recovering/Resolving]
